FAERS Safety Report 18956868 (Version 1)
Quarter: 2021Q1

REPORT INFORMATION
  Report Type: Spontaneous
  Country: FR (occurrence: FR)
  Receive Date: 20210302
  Receipt Date: 20210302
  Transmission Date: 20210420
  Serious: Yes (Other)
  Sender: FDA-Public Use
  Company Number: FR-TEVA-2021-FR-1883983

PATIENT
  Age: 59 Year
  Sex: Male
  Weight: 72 kg

DRUGS (2)
  1. DOXORUBICINE TEVA [Suspect]
     Active Substance: DOXORUBICIN
     Indication: CHLOROMA
     Dosage: 90 MG/M2
     Route: 041
     Dates: start: 20210114, end: 20210116
  2. CYTARABINE ACCORD [Suspect]
     Active Substance: CYTARABINE
     Indication: CHLOROMA
     Dosage: 200 MG/M2
     Route: 041
     Dates: start: 20210114, end: 20210120

REACTIONS (2)
  - Rash [Recovered/Resolved]
  - Toxic skin eruption [Recovered/Resolved]

NARRATIVE: CASE EVENT DATE: 20210122
